FAERS Safety Report 6886459-9 (Version None)
Quarter: 2010Q3

REPORT INFORMATION
  Report Type: 
  Country: None (occurrence: None)
  Receive Date: 20100729
  Receipt Date: 20090525
  Transmission Date: 20110219
  Serious: No
  Sender: FDA-Public Use
  Company Number: US-PFIZER INC-2009192402

PATIENT
  Sex: Female
  Weight: 61.2 kg

DRUGS (4)
  1. CELEBREX [Suspect]
     Dosage: 100 MG, 2X/DAY
     Dates: start: 20090330, end: 20090331
  2. AMIODARONE [Concomitant]
     Dosage: UNK
  3. SPIRONOLACTONE [Concomitant]
  4. WARFARIN [Concomitant]

REACTIONS (5)
  - ABDOMINAL DISTENSION [None]
  - APATHY [None]
  - DIZZINESS [None]
  - FATIGUE [None]
  - FLATULENCE [None]
